FAERS Safety Report 8087493-6 (Version None)
Quarter: 2012Q1

REPORT INFORMATION
  Report Type: 
  Country: None (occurrence: None)
  Receive Date: 20120128
  Receipt Date: 20110524
  Transmission Date: 20120608
  Serious: No
  Sender: FDA-Public Use
  Company Number: US-ABBOTT-11P-163-0728122-00

PATIENT
  Age: 46 Year
  Sex: Female

DRUGS (4)
  1. HUMIRA [Suspect]
     Indication: PSORIASIS
     Dates: start: 20110502
  2. PREVACID [Concomitant]
     Indication: GASTROOESOPHAGEAL REFLUX DISEASE
     Dates: start: 20110101
  3. PATANASE [Concomitant]
     Indication: HYPERSENSITIVITY
     Dates: start: 20110101
  4. NASONEX [Concomitant]
     Indication: HYPERSENSITIVITY
     Dates: start: 20110101

REACTIONS (1)
  - DRUG INEFFECTIVE [None]
